FAERS Safety Report 11702452 (Version 1)
Quarter: 2015Q4

REPORT INFORMATION
  Report Type: Spontaneous
  Country: IT (occurrence: IT)
  Receive Date: 20151105
  Receipt Date: 20151105
  Transmission Date: 20160304
  Serious: Yes (Hospitalization, Other)
  Sender: FDA-Public Use
  Company Number: IT-ELI_LILLY_AND_COMPANY-IT201510010011

PATIENT
  Age: 51 Year
  Sex: Male

DRUGS (3)
  1. HUMALOG MIX50/50 [Suspect]
     Active Substance: INSULIN LISPRO
     Indication: DIABETES MELLITUS
     Dosage: 11 IU, QD
     Route: 058
     Dates: start: 20101216, end: 20150214
  2. ACIDO ACETIL SALICILICO [Concomitant]
     Active Substance: ASPIRIN
     Dosage: UNK, UNKNOWN
     Route: 048
  3. HUMULIN R [Suspect]
     Active Substance: INSULIN HUMAN
     Indication: DIABETES MELLITUS
     Dosage: 31 IU, QD
     Route: 058
     Dates: start: 20101216, end: 20150214

REACTIONS (5)
  - Hypothermia [Unknown]
  - Myocardial ischaemia [Unknown]
  - Body temperature decreased [Unknown]
  - Hypoglycaemia [Recovered/Resolved]
  - Visual impairment [Unknown]

NARRATIVE: CASE EVENT DATE: 2013
